FAERS Safety Report 6458095-X (Version None)
Quarter: 2009Q4

REPORT INFORMATION
  Report Type: 
  Country: None (occurrence: None)
  Receive Date: 20091125
  Receipt Date: 20091112
  Transmission Date: 20100525
  Serious: Yes (Hospitalization)
  Sender: FDA-Public Use
  Company Number: JP-GENENTECH-292524

PATIENT

DRUGS (6)
  1. AVASTIN [Suspect]
     Indication: LARGE INTESTINE CARCINOMA
     Dosage: 5 MG/KG, Q2W
     Route: 041
  2. FLUOROURACIL [Suspect]
     Indication: LARGE INTESTINE CARCINOMA
     Dosage: UNK
     Route: 040
     Dates: start: 20091006
  3. ISOVORIN [Suspect]
     Indication: LARGE INTESTINE CARCINOMA
     Dosage: 325 MG, Q2W
     Route: 041
     Dates: start: 20091006, end: 20091013
  4. ELPLAT [Suspect]
     Indication: DRUG USE FOR UNKNOWN INDICATION
     Dosage: 100 MG, Q2W
     Route: 042
     Dates: end: 20090915
  5. DECADRON [Suspect]
     Indication: DRUG USE FOR UNKNOWN INDICATION
     Dosage: 8 MG, Q2W
     Route: 042
     Dates: start: 20090207, end: 20091013
  6. IRINOTECAN HCL [Concomitant]
     Indication: DRUG USE FOR UNKNOWN INDICATION
     Dosage: UNK
     Dates: start: 20091006

REACTIONS (5)
  - CONVULSION [None]
  - DEVICE RELATED SEPSIS [None]
  - FLUSHING [None]
  - INFUSION RELATED REACTION [None]
  - RESPIRATORY DISORDER [None]
